FAERS Safety Report 6458441-7 (Version None)
Quarter: 2009Q4

REPORT INFORMATION
  Report Type: 
  Country: None (occurrence: None)
  Receive Date: 20091126
  Receipt Date: 20091117
  Transmission Date: 20100525
  Serious: Yes (Other)
  Sender: FDA-Public Use
  Company Number: US-ASTRAZENECA-2009UW03750

PATIENT
  Age: 32 Year
  Sex: Female
  Weight: 88.9 kg

DRUGS (4)
  1. SEROQUEL [Suspect]
     Indication: ANXIETY
     Dosage: 25 TO 500 MG
     Route: 048
     Dates: start: 20020101, end: 20080418
  2. SEROQUEL [Suspect]
     Indication: DEPRESSION
     Dosage: 25 TO 500 MG
     Route: 048
     Dates: start: 20020101, end: 20080418
  3. ABILIFY [Concomitant]
     Dates: start: 20030101, end: 20040101
  4. LEXAPRO [Concomitant]
     Dates: start: 20030101, end: 20040101

REACTIONS (10)
  - ARTHRITIS [None]
  - DIABETES MELLITUS [None]
  - GASTROINTESTINAL DISORDER [None]
  - GLAUCOMA [None]
  - HEPATIC STEATOSIS [None]
  - HYPERTENSION [None]
  - PANCREATITIS [None]
  - PREGNANCY [None]
  - RENAL IMPAIRMENT [None]
  - SYSTEMIC LUPUS ERYTHEMATOSUS [None]
